FAERS Safety Report 6022510-6 (Version None)
Quarter: 2008Q4

REPORT INFORMATION
  Report Type: 
  Country: None (occurrence: None)
  Receive Date: 20081230
  Receipt Date: 20081217
  Transmission Date: 20090506
  Serious: Yes (Other)
  Sender: FDA-Public Use
  Company Number: ES-BAYER-200833199GPV

PATIENT
  Sex: Female

DRUGS (1)
  1. MIRENA [Suspect]
     Indication: DRUG USE FOR UNKNOWN INDICATION
     Route: 015
     Dates: start: 20081101, end: 20081201

REACTIONS (6)
  - ABDOMINAL PAIN [None]
  - ACNE [None]
  - AMENORRHOEA [None]
  - BLINDNESS [None]
  - HOT FLUSH [None]
  - UTERINE RUPTURE [None]
